FAERS Safety Report 14578465 (Version 1)
Quarter: 2018Q1

REPORT INFORMATION
  Report Type: Spontaneous
  Country: US (occurrence: US)
  Receive Date: 20180227
  Receipt Date: 20180227
  Transmission Date: 20180509
  Serious: No
  Sender: FDA-Public Use
  Company Number: US-PFIZER INC-2018080985

PATIENT

DRUGS (2)
  1. NEURONTIN [Suspect]
     Active Substance: GABAPENTIN
     Dosage: 1000 MG, UNK (1000 MG DOSE OF NEURONTIN 3X)
  2. KEPPRA [Suspect]
     Active Substance: LEVETIRACETAM
     Dosage: 1600 MG, 2X/DAY (1600 MG IN AM AND 1600 MG IN PM)

REACTIONS (2)
  - Irritability [Unknown]
  - Exostosis [Unknown]
